FAERS Safety Report 5436496-6 (Version None)
Quarter: 2007Q3

REPORT INFORMATION
  Report Type: 
  Country: None (occurrence: None)
  Receive Date: 20070831
  Receipt Date: 20070821
  Transmission Date: 20080115
  Serious: Yes (Hospitalization, Other)
  Sender: FDA-Public Use
  Company Number: US-AMGEN-STX239720

PATIENT
  Sex: Male

DRUGS (2)
  1. ENBREL [Suspect]
     Indication: RHEUMATOID ARTHRITIS
     Route: 058
     Dates: start: 20060801
  2. METHOTREXATE [Concomitant]
     Route: 065
     Dates: start: 20060801

REACTIONS (3)
  - ARTHRITIS INFECTIVE [None]
  - CARDIAC OPERATION [None]
  - RHEUMATOID ARTHRITIS [None]
